FAERS Safety Report 18903161 (Version 1)
Quarter: 2021Q1

REPORT INFORMATION
  Report Type: Report from Study
  Country: US (occurrence: US)
  Receive Date: 20210217
  Receipt Date: 20210217
  Transmission Date: 20210420
  Serious: No
  Sender: FDA-Public Use
  Company Number: NVSC2021US030571

PATIENT
  Age: 77 Year
  Sex: Male

DRUGS (1)
  1. ENTRESTO [Suspect]
     Active Substance: SACUBITRIL\VALSARTAN
     Indication: CARDIAC FAILURE
     Dosage: 50 MG, BID (24/26 MG)
     Route: 048
     Dates: start: 202011

REACTIONS (2)
  - Sleep disorder [Unknown]
  - Malaise [Unknown]

NARRATIVE: CASE EVENT DATE: 20210208
